FAERS Safety Report 13487787 (Version 1)
Quarter: 2017Q2

REPORT INFORMATION
  Report Type: Spontaneous
  Country: US (occurrence: US)
  Receive Date: 20170426
  Receipt Date: 20170426
  Transmission Date: 20170830
  Serious: No
  Sender: FDA-Public Use
  Company Number: US-ALKERMES INC.-ALK-2016-001090

PATIENT
  Age: 25 Year
  Sex: Male
  Weight: 77.98 kg

DRUGS (1)
  1. VIVITROL [Suspect]
     Active Substance: NALTREXONE
     Indication: DRUG USE DISORDER
     Dosage: 380 MG, QMO
     Route: 030
     Dates: start: 201508

REACTIONS (10)
  - Disorientation [Recovered/Resolved]
  - Emotional distress [Unknown]
  - Alcohol use [Unknown]
  - Feeling abnormal [Recovered/Resolved]
  - Malaise [Unknown]
  - Hyperhidrosis [Recovered/Resolved]
  - Fatigue [Unknown]
  - Euphoric mood [Recovered/Resolved]
  - Feeling drunk [Unknown]
  - Drug use disorder [Unknown]

NARRATIVE: CASE EVENT DATE: 20151016
